FAERS Safety Report 4876885-1 (Version None)
Quarter: 2006Q1

REPORT INFORMATION
  Report Type: 
  Country: None (occurrence: None)
  Receive Date: 20060110
  Receipt Date: 20050708
  Transmission Date: 20060701
  Serious: Yes (Hospitalization)
  Sender: FDA-Public Use
  Company Number: FR-SANOFI-SYNTHELABO-A02200501808

PATIENT
  Age: 77 Year
  Sex: Male

DRUGS (6)
  1. PLAVIX [Suspect]
     Indication: MYOCARDIAL INFARCTION
     Route: 048
     Dates: start: 20030101, end: 20050623
  2. PRIMPERAN INJ [Suspect]
     Indication: NAUSEA
     Dosage: UNK
     Route: 048
     Dates: start: 20050617, end: 20050623
  3. FORLAX [Suspect]
     Indication: CONSTIPATION
     Dosage: UNK
     Route: 048
     Dates: start: 20050608, end: 20050623
  4. KENZEN [Suspect]
     Indication: HYPERTENSION
     Route: 048
     Dates: start: 20050622, end: 20050623
  5. LASILIX [Concomitant]
     Indication: HYPERTENSION
     Dosage: UNK
     Route: 048
     Dates: start: 20030101
  6. CARDENSIEL [Concomitant]
     Indication: CARDIAC FAILURE
     Route: 048
     Dates: start: 20050610

REACTIONS (9)
  - BLOOD ALKALINE PHOSPHATASE INCREASED [None]
  - BLOOD CREATININE INCREASED [None]
  - BLOOD UREA INCREASED [None]
  - CARDIAC FAILURE CONGESTIVE [None]
  - CONSTIPATION [None]
  - HEPATIC FAILURE [None]
  - HEPATITIS [None]
  - PROTHROMBIN TIME RATIO DECREASED [None]
  - TRANSAMINASES INCREASED [None]
